FAERS Safety Report 19240665 (Version 4)
Quarter: 2021Q2

REPORT INFORMATION
  Report Type: Spontaneous
  Country: US (occurrence: US)
  Receive Date: 20210511
  Receipt Date: 20210625
  Transmission Date: 20210717
  Serious: No
  Sender: FDA-Public Use
  Company Number: US-AMGEN-USASP2021070697

PATIENT
  Age: 39 Year
  Sex: Female

DRUGS (10)
  1. MONTELUKAST [Concomitant]
     Active Substance: MONTELUKAST SODIUM
  2. ZOLMITRIPTAN. [Concomitant]
     Active Substance: ZOLMITRIPTAN
  3. ZONISAMIDE. [Concomitant]
     Active Substance: ZONISAMIDE
  4. AMOXICILLIN AND CLAVULANATE POTASSIUM [AMOXICILLIN SODIUM;CLAVULANATE [Concomitant]
     Active Substance: AMOXICILLIN\CLAVULANATE POTASSIUM
  5. LEVETIRACETAM. [Concomitant]
     Active Substance: LEVETIRACETAM
  6. COVID?19 VACCINE [Concomitant]
  7. OTEZLA [Suspect]
     Active Substance: APREMILAST
     Indication: PSORIASIS
     Dosage: 30 MILLIGRAM, BID
     Route: 048
     Dates: start: 20210410
  8. FLUOCINONIDE. [Concomitant]
     Active Substance: FLUOCINONIDE
  9. VALACYCLOVIR [Concomitant]
     Active Substance: VALACYCLOVIR HYDROCHLORIDE
  10. METHYLPRED [Concomitant]
     Active Substance: METHYLPREDNISOLONE

REACTIONS (6)
  - Therapy non-responder [Not Recovered/Not Resolved]
  - Arthralgia [Not Recovered/Not Resolved]
  - Product dose omission issue [Unknown]
  - Diarrhoea [Not Recovered/Not Resolved]
  - Headache [Not Recovered/Not Resolved]
  - Fatigue [Not Recovered/Not Resolved]

NARRATIVE: CASE EVENT DATE: 2021
